FAERS Safety Report 18272076 (Version 1)
Quarter: 2020Q3

REPORT INFORMATION
  Report Type: Spontaneous
  Country: AR (occurrence: AR)
  Receive Date: 20200916
  Receipt Date: 20200916
  Transmission Date: 20201103
  Serious: Yes (Other)
  Sender: FDA-Public Use
  Company Number: AR-ELI_LILLY_AND_COMPANY-AR202009003726

PATIENT
  Sex: Male

DRUGS (1)
  1. HUMALOG [Suspect]
     Active Substance: INSULIN LISPRO
     Indication: PRODUCT USED FOR UNKNOWN INDICATION
     Dosage: 8 U, BID (MORNING AND NIGHT)
     Route: 058

REACTIONS (4)
  - Retinal disorder [Unknown]
  - Limb discomfort [Unknown]
  - Coronary artery disease [Unknown]
  - Blindness unilateral [Not Recovered/Not Resolved]
